FAERS Safety Report 5828325-3 (Version None)
Quarter: 2008Q3

REPORT INFORMATION
  Report Type: 
  Country: None (occurrence: None)
  Receive Date: 20080731
  Receipt Date: 20080728
  Transmission Date: 20090109
  Serious: Yes (Hospitalization, Other)
  Sender: FDA-Public Use
  Company Number: US-RB-002725-08

PATIENT
  Sex: Male

DRUGS (4)
  1. SUBOXONE [Suspect]
     Route: 060
     Dates: start: 20080625, end: 20080727
  2. CYMBALTA [Concomitant]
     Indication: DEPRESSION
     Route: 048
  3. CARBATROL [Concomitant]
     Indication: BIPOLAR DISORDER
     Dosage: DOSING INFORMATION UNKNOWN
     Route: 048
  4. NEURONTIN [Concomitant]
     Indication: SCIATICA
     Route: 048

REACTIONS (5)
  - FACE OEDEMA [None]
  - OXYGEN SATURATION DECREASED [None]
  - PYREXIA [None]
  - RASH [None]
  - RESPIRATORY DISORDER [None]
